FAERS Safety Report 11179897 (Version 2)
Quarter: 2015Q3

REPORT INFORMATION
  Report Type: Spontaneous
  Country: US (occurrence: None)
  Receive Date: 20150609
  Receipt Date: 20150729
  Transmission Date: 20151125
  Serious: Yes (Hospitalization, Other)
  Sender: FDA-Public Use
  Company Number: 2015SMT00111

PATIENT
  Age: 71 Year
  Sex: Male
  Weight: 133.8 kg

DRUGS (11)
  1. REGRANEX [Suspect]
     Active Substance: BECAPLERMIN
     Indication: DIABETIC ULCER
     Dates: start: 20150517, end: 20150519
  2. GLIMEPIRIDE. [Concomitant]
     Active Substance: GLIMEPIRIDE
  3. ATORVASTATIN [Concomitant]
     Active Substance: ATORVASTATIN
  4. GABAPENTIN. [Concomitant]
     Active Substance: GABAPENTIN
  5. DULOXETINE. [Concomitant]
     Active Substance: DULOXETINE
  6. PRAMIPEXOLE. [Concomitant]
     Active Substance: PRAMIPEXOLE
  7. LOSARTAN. [Concomitant]
     Active Substance: LOSARTAN
  8. MULTIVITAMIN-IRON-MINERALS-FOLIC ACID (DIETARY SUPPLEMENT) [Concomitant]
  9. ASPIRIN (ACETYLSALICYLIC ACID) [Concomitant]
     Active Substance: ASPIRIN
  10. TADALAFIL [Concomitant]
     Active Substance: TADALAFIL
  11. METFORMIN [Concomitant]
     Active Substance: METFORMIN HYDROCHLORIDE

REACTIONS (12)
  - Application site discolouration [None]
  - Rhinitis allergic [None]
  - Application site irritation [None]
  - Gangrene [None]
  - Cellulitis [None]
  - Obesity [None]
  - Osteoarthritis [None]
  - Foot amputation [None]
  - Sepsis [None]
  - Corynebacterium test positive [None]
  - Vomiting [None]
  - Vertigo positional [None]

NARRATIVE: CASE EVENT DATE: 201505
